FAERS Safety Report 9520439 (Version 1)
Quarter: 2013Q3

REPORT INFORMATION
  Report Type: Spontaneous
  Country: PY (occurrence: PY)
  Receive Date: 20130912
  Receipt Date: 20130912
  Transmission Date: 20140515
  Serious: Yes (Hospitalization)
  Sender: FDA-Public Use
  Company Number: PY-ROXANE LABORATORIES, INC.-2013-RO-01507RO

PATIENT
  Age: 44 Year
  Sex: Female

DRUGS (4)
  1. AZATHIOPRINE [Suspect]
     Dosage: 50 MG
  2. PREDNISONE [Suspect]
     Dosage: 50 MG
  3. LOSARTAN [Concomitant]
     Indication: AORTIC ANEURYSM
     Dosage: 50 MG
  4. ATENOLOL [Concomitant]
     Indication: AORTIC ANEURYSM
     Dosage: 50 MG

REACTIONS (1)
  - American trypanosomiasis [Recovered/Resolved]
